FAERS Safety Report 7952976-3 (Version None)
Quarter: 2011Q4

REPORT INFORMATION
  Report Type: 
  Country: None (occurrence: None)
  Receive Date: 20111201
  Receipt Date: 20111129
  Transmission Date: 20120403
  Serious: Yes (Other)
  Sender: FDA-Public Use
  Company Number: PHEH2007US05368

PATIENT
  Sex: Female
  Weight: 68 kg

DRUGS (32)
  1. PREMARIN [Suspect]
     Indication: MENOPAUSE
     Dosage: 0.625 MG, UNK
     Dates: start: 19901126, end: 20001101
  2. CALCIUM CARBONATE [Concomitant]
  3. FOSAMAX [Concomitant]
  4. PLAVIX [Concomitant]
  5. PROVERA [Suspect]
     Dosage: 10 MG, UNK
     Dates: start: 19901126
  6. MEDROXYPROGESTERONE [Suspect]
     Indication: MENOPAUSE
     Route: 065
     Dates: start: 19910101
  7. PREDNISONE TAB [Concomitant]
     Indication: RHEUMATOID ARTHRITIS
     Dates: start: 19880101, end: 19910101
  8. TAMOXIFEN CITRATE [Concomitant]
     Indication: BREAST CANCER
     Dosage: 10 MG, BID
  9. ZANTAC [Concomitant]
  10. MAGNESIUM SULFATE [Concomitant]
  11. PROVERA [Suspect]
     Dosage: 2.5 MG, UNK
     Route: 065
     Dates: end: 20001101
  12. OGEN [Suspect]
  13. TRICOR [Concomitant]
  14. METHOTREXATE [Concomitant]
     Indication: RHEUMATOID ARTHRITIS
  15. FLUCONAZOLE [Concomitant]
     Dosage: 150 MG, UNK
  16. PROVERA [Suspect]
     Indication: MENOPAUSE
     Route: 065
     Dates: start: 19880101, end: 19910101
  17. PREMARIN [Suspect]
     Dates: start: 19880101, end: 19910101
  18. PREMPRO [Suspect]
  19. PAXIL [Concomitant]
     Indication: DEPRESSION
  20. NAPROXEN (ALEVE) [Concomitant]
     Dosage: 220 MG, UNK
  21. PROVERA [Suspect]
     Route: 065
     Dates: start: 19910101
  22. PREMARIN [Suspect]
     Indication: MENOPAUSE
     Route: 061
     Dates: start: 19920311, end: 19971123
  23. HORMONES [Suspect]
     Indication: MENOPAUSE
     Route: 061
     Dates: start: 19910101
  24. ASPIRIN [Concomitant]
     Dosage: 81 MG, UNK
  25. PREVACID [Concomitant]
     Dosage: 30 MG, UNK
  26. MACRODANTIN [Concomitant]
     Dosage: 50 MG, UNK
  27. CLIMARA [Suspect]
     Route: 062
  28. FOLIC ACID [Concomitant]
  29. ESTRADERM [Suspect]
     Indication: MENOPAUSE
     Dates: start: 19910101, end: 19930311
  30. ESTRADERM [Suspect]
     Dosage: 0.05 MG, BIW
     Route: 062
     Dates: start: 19920311, end: 19930311
  31. CYCRIN [Suspect]
     Indication: MENOPAUSE
     Dosage: 2.5 MG, UNK
     Route: 065
     Dates: start: 19971117, end: 19971217
  32. ZOLOFT [Concomitant]
     Indication: DEPRESSION

REACTIONS (33)
  - AORTIC STENOSIS [None]
  - LIVER FUNCTION TEST ABNORMAL [None]
  - INSOMNIA [None]
  - OVARIAN CYST [None]
  - CERVICAL DYSPLASIA [None]
  - CARDIAC MURMUR [None]
  - VISUAL IMPAIRMENT [None]
  - GASTROOESOPHAGEAL REFLUX DISEASE [None]
  - BREAST CANCER [None]
  - DEPRESSION [None]
  - PELVIC PAIN [None]
  - ARTERIOSCLEROSIS [None]
  - HIATUS HERNIA [None]
  - BREAST HYPERPLASIA [None]
  - METABOLIC DISORDER [None]
  - CHRONIC OBSTRUCTIVE PULMONARY DISEASE [None]
  - CHEST PAIN [None]
  - NAUSEA [None]
  - CORONARY ARTERY DISEASE [None]
  - VITAMIN B12 DEFICIENCY [None]
  - FIBROCYSTIC BREAST DISEASE [None]
  - UTERINE LEIOMYOMA [None]
  - ABDOMINAL PAIN [None]
  - FATIGUE [None]
  - FOOT DEFORMITY [None]
  - BREAST MASS [None]
  - RECTOCELE [None]
  - DIZZINESS [None]
  - ENDOMETRIAL HYPERPLASIA [None]
  - AMNESIA [None]
  - DYSPEPSIA [None]
  - DYSPNOEA [None]
  - DYSURIA [None]
